FAERS Safety Report 10561267 (Version 1)
Quarter: 2014Q4

REPORT INFORMATION
  Report Type: Spontaneous
  Country: IN (occurrence: IN)
  Receive Date: 20141103
  Receipt Date: 20141103
  Transmission Date: 20150529
  Serious: Yes (Other)
  Sender: FDA-Public Use
  Company Number: IN-MYLANLABS-2014M1009288

PATIENT

DRUGS (1)
  1. SODIUM TETRADECYL SULFATE [Suspect]
     Active Substance: SODIUM TETRADECYL SULFATE
     Indication: SCLEROTHERAPY
     Dosage: 0.1 ML OF 1%
     Route: 065

REACTIONS (1)
  - Embolia cutis medicamentosa [Recovered/Resolved with Sequelae]
